FAERS Safety Report 17722836 (Version 5)
Quarter: 2024Q2

REPORT INFORMATION
  Report Type: Spontaneous
  Country: CA (occurrence: CA)
  Receive Date: 20200429
  Receipt Date: 20240628
  Transmission Date: 20240716
  Serious: Yes (Other)
  Sender: FDA-Public Use
  Company Number: CA-BAUSCH-BL-2020-012539

PATIENT
  Age: 57 Year
  Sex: Female

DRUGS (59)
  1. BUPROPION [Suspect]
     Active Substance: BUPROPION\BUPROPION HYDROCHLORIDE
     Indication: Anxiety
     Route: 048
  2. BUPROPION [Suspect]
     Active Substance: BUPROPION\BUPROPION HYDROCHLORIDE
     Route: 048
  3. BUPROPION [Suspect]
     Active Substance: BUPROPION\BUPROPION HYDROCHLORIDE
     Route: 048
  4. BUPROPION [Suspect]
     Active Substance: BUPROPION\BUPROPION HYDROCHLORIDE
     Route: 048
  5. BUPROPION [Suspect]
     Active Substance: BUPROPION\BUPROPION HYDROCHLORIDE
     Route: 048
  6. BUPROPION [Suspect]
     Active Substance: BUPROPION\BUPROPION HYDROCHLORIDE
     Route: 048
  7. CANDESARTAN CILEXETIL [Suspect]
     Active Substance: CANDESARTAN CILEXETIL
     Indication: Hypertension
     Route: 065
  8. CANDESARTAN CILEXETIL [Suspect]
     Active Substance: CANDESARTAN CILEXETIL
     Route: 048
  9. CANDESARTAN CILEXETIL [Suspect]
     Active Substance: CANDESARTAN CILEXETIL
     Route: 048
  10. CANDESARTAN CILEXETIL [Suspect]
     Active Substance: CANDESARTAN CILEXETIL
     Route: 048
  11. CANDESARTAN CILEXETIL [Suspect]
     Active Substance: CANDESARTAN CILEXETIL
     Route: 048
  12. CANDESARTAN CILEXETIL [Suspect]
     Active Substance: CANDESARTAN CILEXETIL
     Route: 065
  13. CANDESARTAN CILEXETIL [Suspect]
     Active Substance: CANDESARTAN CILEXETIL
     Route: 065
  14. CLONAZEPAM [Suspect]
     Active Substance: CLONAZEPAM
     Indication: Sleep disorder
     Route: 048
  15. CLONAZEPAM [Suspect]
     Active Substance: CLONAZEPAM
     Route: 048
  16. CLONAZEPAM [Suspect]
     Active Substance: CLONAZEPAM
     Route: 048
  17. OMALIZUMAB [Suspect]
     Active Substance: OMALIZUMAB
     Indication: Asthma
     Route: 058
  18. OMALIZUMAB [Suspect]
     Active Substance: OMALIZUMAB
     Route: 058
  19. OMALIZUMAB [Suspect]
     Active Substance: OMALIZUMAB
     Route: 058
  20. OMALIZUMAB [Suspect]
     Active Substance: OMALIZUMAB
     Route: 065
  21. OMALIZUMAB [Suspect]
     Active Substance: OMALIZUMAB
     Route: 058
  22. OMALIZUMAB [Suspect]
     Active Substance: OMALIZUMAB
     Route: 058
  23. OMALIZUMAB [Suspect]
     Active Substance: OMALIZUMAB
     Route: 057
  24. OMALIZUMAB [Suspect]
     Active Substance: OMALIZUMAB
     Route: 057
  25. OMALIZUMAB [Suspect]
     Active Substance: OMALIZUMAB
     Route: 058
  26. OMALIZUMAB [Suspect]
     Active Substance: OMALIZUMAB
     Route: 058
  27. NAPROXEN [Concomitant]
     Active Substance: NAPROXEN
     Indication: Product used for unknown indication
     Dosage: NAPROXEN, NOT SPECIFIED
  28. NAPROXEN [Concomitant]
     Active Substance: NAPROXEN
     Dosage: NAPROXEN SODIUM
  29. NASONEX [Concomitant]
     Active Substance: MOMETASONE FUROATE
     Indication: Hypersensitivity
     Dosage: SPRAY, METERED DOSE
     Route: 006
  30. NASONEX [Concomitant]
     Active Substance: MOMETASONE FUROATE
     Dosage: SPRAY, METERED DOSE
     Route: 006
  31. NASONEX [Concomitant]
     Active Substance: MOMETASONE FUROATE
     Route: 006
  32. PREDNISONE [Concomitant]
     Active Substance: PREDNISONE
     Indication: Asthma
  33. PREDNISONE [Concomitant]
     Active Substance: PREDNISONE
     Route: 048
  34. PREDNISONE [Concomitant]
     Active Substance: PREDNISONE
  35. PREDNISONE [Concomitant]
     Active Substance: PREDNISONE
  36. PREDNISONE [Concomitant]
     Active Substance: PREDNISONE
     Route: 048
  37. PREDNISONE [Concomitant]
     Active Substance: PREDNISONE
  38. PREDNISONE [Concomitant]
     Active Substance: PREDNISONE
     Route: 048
  39. PREDNISONE [Concomitant]
     Active Substance: PREDNISONE
  40. SINGULAIR [Concomitant]
     Active Substance: MONTELUKAST SODIUM
     Indication: Asthma
     Dosage: NOT SPECIFIED
     Route: 048
  41. SPIRIVA [Concomitant]
     Active Substance: TIOTROPIUM BROMIDE MONOHYDRATE
     Indication: Asthma
     Route: 065
  42. SPIRIVA [Concomitant]
     Active Substance: TIOTROPIUM BROMIDE MONOHYDRATE
     Route: 048
  43. SPIRIVA [Concomitant]
     Active Substance: TIOTROPIUM BROMIDE MONOHYDRATE
     Route: 048
  44. SPIRIVA [Concomitant]
     Active Substance: TIOTROPIUM BROMIDE MONOHYDRATE
     Route: 065
  45. TRAZODONE [Concomitant]
     Active Substance: TRAZODONE HYDROCHLORIDE
     Indication: Asthma
     Route: 048
  46. TRAZODONE [Concomitant]
     Active Substance: TRAZODONE HYDROCHLORIDE
     Route: 048
  47. TRAZODONE [Concomitant]
     Active Substance: TRAZODONE HYDROCHLORIDE
     Route: 048
  48. TYLENOL [Concomitant]
     Active Substance: ACETAMINOPHEN
     Indication: Product used for unknown indication
  49. VENTOLIN [Concomitant]
     Active Substance: ALBUTEROL SULFATE
     Indication: Asthma
  50. VENTOLIN [Concomitant]
     Active Substance: ALBUTEROL SULFATE
  51. ALBUTEROL [Concomitant]
     Active Substance: ALBUTEROL
     Indication: Asthma
     Dosage: SALBUTAMOL
  52. ALBUTEROL [Concomitant]
     Active Substance: ALBUTEROL
     Dosage: SALBUTAMOL SULFATE
  53. TIOTROPIUM BROMIDE [Concomitant]
     Active Substance: TIOTROPIUM BROMIDE
     Indication: Asthma
     Dosage: TIOTROPIUM BROMIDE
  54. TIOTROPIUM BROMIDE [Concomitant]
     Active Substance: TIOTROPIUM BROMIDE
     Dosage: TIOTROPIUM BROMIDE MONOHYDRATE
  55. TIOTROPIUM BROMIDE [Concomitant]
     Active Substance: TIOTROPIUM BROMIDE
     Dosage: TIOTROPIUM BROMIDE MONOHYDRATE
     Route: 048
  56. ADVAIR HFA [Concomitant]
     Active Substance: FLUTICASONE PROPIONATE\SALMETEROL XINAFOATE
     Indication: Asthma
  57. ADVAIR HFA [Concomitant]
     Active Substance: FLUTICASONE PROPIONATE\SALMETEROL XINAFOATE
     Dosage: NOT SPECIFIED
  58. SALMETEROL XINAFOATE [Concomitant]
     Active Substance: SALMETEROL XINAFOATE
     Indication: Product used for unknown indication
  59. ACETAMINOPHEN [Concomitant]
     Active Substance: ACETAMINOPHEN
     Indication: Product used for unknown indication

REACTIONS (7)
  - Productive cough [Not Recovered/Not Resolved]
  - Sputum discoloured [Not Recovered/Not Resolved]
  - Pneumonia [Not Recovered/Not Resolved]
  - Breast cancer [Not Recovered/Not Resolved]
  - Dyspnoea [Not Recovered/Not Resolved]
  - Headache [Not Recovered/Not Resolved]
  - Drug ineffective [Not Recovered/Not Resolved]
